FAERS Safety Report 9857770 (Version 1)
Quarter: 2014Q1

REPORT INFORMATION
  Report Type: Spontaneous
  Country: US (occurrence: US)
  Receive Date: 20140131
  Receipt Date: 20140131
  Transmission Date: 20141002
  Serious: Yes (Other)
  Sender: FDA-Public Use
  Company Number: US-BIOGENIDEC-2014BI008616

PATIENT
  Age: 47 Year
  Sex: Female

DRUGS (10)
  1. TECFIDERA [Suspect]
     Indication: MULTIPLE SCLEROSIS
     Route: 048
     Dates: start: 201303
  2. ASPIRIN [Concomitant]
  3. BIOTIN [Concomitant]
  4. OMEGA 3 [Concomitant]
  5. ALOE VERA [Concomitant]
  6. VITAMIN D-3 [Concomitant]
  7. ADRENAL [Concomitant]
  8. GABAPENTIN [Concomitant]
  9. AMBIEN PAK [Concomitant]
  10. ZOLOFT [Concomitant]

REACTIONS (1)
  - Hysterectomy [Unknown]
